FAERS Safety Report 8471904-8 (Version None)
Quarter: 2012Q2

REPORT INFORMATION
  Report Type: 
  Country: None (occurrence: None)
  Receive Date: 20120627
  Receipt Date: 20120618
  Transmission Date: 20120825
  Serious: Yes (Other)
  Sender: FDA-Public Use
  Company Number: US-JNJFOC-20120610476

PATIENT
  Sex: Female
  Weight: 69.85 kg

DRUGS (5)
  1. PROZAC [Concomitant]
     Indication: MIGRAINE
     Route: 048
     Dates: start: 20040101
  2. SIMPONI [Concomitant]
     Indication: RHEUMATOID ARTHRITIS
     Route: 058
     Dates: start: 20110101
  3. TOPAMAX [Suspect]
     Indication: MIGRAINE PROPHYLAXIS
     Route: 048
     Dates: start: 20040101
  4. ZANAFLEX [Concomitant]
     Indication: MIGRAINE
     Route: 048
     Dates: start: 20040101
  5. GABAPENTIN [Concomitant]
     Indication: MUSCLE RELAXANT THERAPY
     Dosage: 1 IN MORNING, 2 IN AFTERNOON AND 2 AT NIGHT
     Route: 048
     Dates: start: 20040101

REACTIONS (2)
  - ADVERSE EVENT [None]
  - INTERVERTEBRAL DISC OPERATION [None]
